FAERS Safety Report 12912117 (Version 2)
Quarter: 2016Q4

REPORT INFORMATION
  Report Type: Spontaneous
  Country: US (occurrence: US)
  Receive Date: 20161104
  Receipt Date: 20161114
  Transmission Date: 20170207
  Serious: Yes (Hospitalization)
  Sender: FDA-Public Use
  Company Number: US-ROCHE-1849923

PATIENT
  Age: 50 Year
  Sex: Female
  Weight: 106.8 kg

DRUGS (5)
  1. PERJETA [Suspect]
     Active Substance: PERTUZUMAB
     Indication: ADJUVANT THERAPY
     Dosage: REGULAR DOSING
     Route: 065
  2. HERCEPTIN [Suspect]
     Active Substance: TRASTUZUMAB
     Indication: ADJUVANT THERAPY
     Dosage: LOADING DOSE
     Route: 042
     Dates: start: 20160819
  3. CARBOPLATIN. [Concomitant]
     Active Substance: CARBOPLATIN
     Indication: ADJUVANT THERAPY
     Dosage: REGULAR DOSING
     Route: 065
  4. TAXOTERE [Concomitant]
     Active Substance: DOCETAXEL
  5. DOCETAKSEL [Concomitant]
     Indication: ADJUVANT THERAPY
     Dosage: REGULAR DOSING
     Route: 065

REACTIONS (1)
  - Infusion related reaction [Recovered/Resolved]

NARRATIVE: CASE EVENT DATE: 20160819
